FAERS Safety Report 17065475 (Version 1)
Quarter: 2019Q4

REPORT INFORMATION
  Report Type: Spontaneous
  Country: US (occurrence: US)
  Receive Date: 20191122
  Receipt Date: 20191122
  Transmission Date: 20200122
  Serious: Yes (Hospitalization)
  Sender: FDA-Public Use
  Company Number: US-FRESENIUS MEDICAL CARE RENAL THERAPIES GROUP-FMC-1911-001480

PATIENT
  Sex: Male
  Weight: 121 kg

DRUGS (2)
  1. DELFLEX WITH DEXTROSE 1.5% LOW MAGNESIUM LOW CALCIUM [Suspect]
     Active Substance: CALCIUM CHLORIDE\DEXTROSE\MAGNESIUM CHLORIDE\SODIUM CHLORIDE\SODIUM LACTATE
     Indication: END STAGE RENAL DISEASE
     Dosage: NOT PERFORM TIDAL THERAPY, FILL VOLUME FOR EACH CYCLE IS 2500 ML, LAST FILL OF 2500 ML, NO DAYTIME E
     Route: 033
  2. DELFLEX WITH DEXTROSE 2.5% LOW MAGNESIUM LOW CALCIUM [Suspect]
     Active Substance: CALCIUM CHLORIDE\DEXTROSE\MAGNESIUM CHLORIDE\SODIUM CHLORIDE\SODIUM LACTATE
     Indication: END STAGE RENAL DISEASE
     Dosage: NOT PERFORM TIDAL THERAPY, FILL VOLUME FOR EACH CYCLE IS 2500 ML WITH A LAST FILL OF 2500 ML, NO DAY
     Route: 033

REACTIONS (1)
  - Myocardial infarction [Unknown]
